FAERS Safety Report 8027295-X (Version None)
Quarter: 2012Q1

REPORT INFORMATION
  Report Type: 
  Country: None (occurrence: None)
  Receive Date: 20120106
  Receipt Date: 20120104
  Transmission Date: 20120608
  Serious: Yes (Other)
  Sender: FDA-Public Use
  Company Number: CH-PFIZER INC-2011286515

PATIENT
  Age: 42 Year
  Sex: Female

DRUGS (8)
  1. TOCTINO [Interacting]
     Indication: ECZEMA
     Dosage: 30 MG, 1X/DAY
     Route: 048
     Dates: start: 20110510
  2. CHLORDIAZEPOXIDE [Interacting]
     Dosage: UNK
  3. TRILEPTAL [Interacting]
     Indication: EPILEPSY
     Dosage: UNK
     Route: 048
  4. MIRENA [Interacting]
     Indication: CONTRACEPTION
     Dosage: UNK
     Route: 015
     Dates: start: 20110506
  5. LAMICTAL [Interacting]
     Indication: EPILEPSY
     Dosage: UNK
     Route: 048
  6. TOPAMAX [Interacting]
     Indication: EPILEPSY
     Dosage: UNK
     Route: 048
  7. URBANYL [Interacting]
     Indication: EPILEPSY
     Dosage: UNK
     Route: 048
  8. ZOLOFT [Suspect]
     Dosage: UNK

REACTIONS (4)
  - GRAND MAL CONVULSION [None]
  - HEADACHE [None]
  - DRUG INTERACTION [None]
  - DIZZINESS [None]
